FAERS Safety Report 22197407 (Version 2)
Quarter: 2023Q2

REPORT INFORMATION
  Report Type: Report from Study
  Country: US (occurrence: US)
  Receive Date: 20230411
  Receipt Date: 20230605
  Transmission Date: 20230721
  Serious: Yes (Other)
  Sender: FDA-Public Use
  Company Number: US-MYLANLABS-2023M1037692

PATIENT
  Sex: Female
  Weight: 104.33 kg

DRUGS (2)
  1. LYRICA [Suspect]
     Active Substance: PREGABALIN
     Indication: Pain in extremity
     Dosage: 150 MILLIGRAM, TID
     Route: 065
  2. LYRICA [Suspect]
     Active Substance: PREGABALIN
     Indication: Nerve injury

REACTIONS (5)
  - Drug dependence [Unknown]
  - COVID-19 [Unknown]
  - Pain [Unknown]
  - Muscle spasms [Unknown]
  - Off label use [Unknown]
